FAERS Safety Report 10360512 (Version 1)
Quarter: 2014Q3

REPORT INFORMATION
  Report Type: Spontaneous
  Country: FR (occurrence: None)
  Receive Date: 20140730
  Receipt Date: 20140730
  Transmission Date: 20150326
  Serious: Yes (Other)
  Sender: FDA-Public Use
  Company Number: 2014-20065

PATIENT
  Age: 73 Year
  Sex: Female

DRUGS (5)
  1. EYLEA [Suspect]
     Active Substance: AFLIBERCEPT
     Indication: AGE-RELATED MACULAR DEGENERATION
     Route: 031
     Dates: start: 20140206, end: 20140206
  2. RAMIPRIL (RAMIPRIL) [Concomitant]
     Active Substance: RAMIPRIL
  3. METFORMINE (METFORMIN HYDROCHLORIDE) [Concomitant]
  4. CRESTOR [Concomitant]
     Active Substance: ROSUVASTATIN CALCIUM
  5. KARDEGIC (ACETYLSALICYLATELYSINE) [Concomitant]

REACTIONS (4)
  - Aortic stenosis [None]
  - Cerebrovascular accident [None]
  - Paralysis [None]
  - Hemiplegia [None]

NARRATIVE: CASE EVENT DATE: 20140515
